FAERS Safety Report 6670127-2 (Version None)
Quarter: 2010Q2

REPORT INFORMATION
  Report Type: 
  Country: None (occurrence: None)
  Receive Date: 20100406
  Receipt Date: 20100226
  Transmission Date: 20101027
  Serious: No
  Sender: FDA-Public Use
  Company Number: US-ALLERGAN-1002521US

PATIENT
  Sex: Female

DRUGS (3)
  1. LATISSE [Suspect]
     Indication: GROWTH OF EYELASHES
     Dosage: 1 GTT, QHS
     Route: 061
  2. SPIRONOLACTONE [Concomitant]
     Dosage: 50 MG, QD
  3. VITAMIN D [Concomitant]
     Dosage: 1 PER WEEK

REACTIONS (1)
  - IRIS HYPERPIGMENTATION [None]
